FAERS Safety Report 9843528 (Version 1)
Quarter: 2013Q4

REPORT INFORMATION
  Report Type: Spontaneous
  Country: US (occurrence: None)
  Receive Date: 20131219
  Receipt Date: 20131219
  Transmission Date: 20140711
  Serious: Yes (Other)
  Sender: FDA-Public Use
  Company Number: 163-20785-13062663

PATIENT
  Age: 81 Year
  Sex: Female

DRUGS (10)
  1. THALOMID (THALIDOMIDE) (100 MILLIGRAM, CAPSULES) [Suspect]
     Indication: PLASMA CELL MYELOMA
     Dosage: 100 MG , 28 IN 28 D, PO  - 27/JUL/2011 - TEMPORARILY INTERRUPTED
     Route: 048
     Dates: start: 20110727
  2. AMITRIPTYLINE (AMITRIPTYLINE) (UNKNOWN) [Concomitant]
  3. ATENOLOL (ATENOLOL) [Concomitant]
  4. COUMADIN (WARFARIN SODIUM) [Concomitant]
  5. COUMADIN (WARFARIN SODIUM) [Concomitant]
  6. DEXAMETHASONE (DEXAMETHASONE) UNKNOWN [Concomitant]
  7. FOLIC ACID (FOLIC ACID) [Concomitant]
  8. LISINOPRIL (LISINOPRIL) (UNKNOWN) [Concomitant]
  9. LOVENOX (HEPARIN-FRACTION, SODIUM SALT) (UNKNOWN) [Concomitant]
  10. NEURONTIN (GABAPENTIN) (UNKNOWN) [Concomitant]

REACTIONS (1)
  - Renal disorder [None]
